FAERS Safety Report 24706606 (Version 1)
Quarter: 2024Q4

REPORT INFORMATION
  Report Type: Spontaneous
  Country: MX (occurrence: MX)
  Receive Date: 20241206
  Receipt Date: 20241206
  Transmission Date: 20250114
  Serious: Yes (Other)
  Sender: ROCHE
  Company Number: MX-ROCHE-10000150774

PATIENT
  Sex: Female

DRUGS (1)
  1. FARICIMAB [Suspect]
     Active Substance: FARICIMAB
     Indication: Product used for unknown indication
     Dosage: DOSE AND FREQUENCY WERE NOT REPORTED
     Route: 065

REACTIONS (2)
  - Uveitis [Recovered/Resolved]
  - Mycobacterium tuberculosis complex test positive [Unknown]
